FAERS Safety Report 9149950 (Version 2)
Quarter: 2013Q1

REPORT INFORMATION
  Report Type: Spontaneous
  Country: ZA (occurrence: ZA)
  Receive Date: 20130308
  Receipt Date: 20130318
  Transmission Date: 20140127
  Serious: Yes (Other)
  Sender: FDA-Public Use
  Company Number: PHHY2013ZA022868

PATIENT
  Sex: 0

DRUGS (1)
  1. ONBREZ [Suspect]

REACTIONS (2)
  - Myocardial infarction [Unknown]
  - Fall [Unknown]
